FAERS Safety Report 17147257 (Version 1)
Quarter: 2019Q4

REPORT INFORMATION
  Report Type: Spontaneous
  Country: GB (occurrence: GB)
  Receive Date: 20191212
  Receipt Date: 20191212
  Transmission Date: 20200122
  Serious: Yes (Disabling, Other)
  Sender: FDA-Public Use
  Company Number: GB-GLAXOSMITHKLINE-GB2019221211

PATIENT
  Age: 31 Year
  Sex: Male
  Weight: 88.9 kg

DRUGS (2)
  1. INFLUENZA VACCINE [Concomitant]
     Active Substance: INFLUENZA VIRUS VACCINE
     Indication: PROPHYLAXIS
     Route: 065
  2. FLIXONASE [Suspect]
     Active Substance: FLUTICASONE PROPIONATE
     Dosage: 1 DF, QD HALF IN EACH NOSTRIL
     Route: 048
     Dates: start: 20191114

REACTIONS (1)
  - Dysphagia [Not Recovered/Not Resolved]

NARRATIVE: CASE EVENT DATE: 20191114
